FAERS Safety Report 15393102 (Version 2)
Quarter: 2018Q4

REPORT INFORMATION
  Report Type: Spontaneous
  Country: FR (occurrence: FR)
  Receive Date: 20180917
  Receipt Date: 20181001
  Transmission Date: 20190204
  Serious: Yes (Hospitalization)
  Sender: FDA-Public Use
  Company Number: FR-PFIZER INC-2018367995

PATIENT
  Age: 43 Year
  Sex: Male

DRUGS (5)
  1. VENLAFAXINE HCL [Suspect]
     Active Substance: VENLAFAXINE HYDROCHLORIDE
     Indication: TOXICITY TO VARIOUS AGENTS
     Dosage: 675 MG, UNK
     Route: 048
     Dates: start: 20180730, end: 20180730
  2. TERBINAFINE. [Suspect]
     Active Substance: TERBINAFINE
     Indication: TOXICITY TO VARIOUS AGENTS
     Dosage: 750 MG, UNK
     Route: 048
     Dates: start: 20180730, end: 20180730
  3. DESLORATADINE. [Suspect]
     Active Substance: DESLORATADINE
     Indication: TOXICITY TO VARIOUS AGENTS
     Dosage: 110 MG, UNK
     Route: 048
     Dates: start: 20180730, end: 20180730
  4. KETOPROFENE [KETOPROFEN] [Suspect]
     Active Substance: KETOPROFEN
     Indication: TOXICITY TO VARIOUS AGENTS
     Dosage: 700 MG, UNK
     Route: 048
     Dates: start: 20180730, end: 20180730
  5. OXAZEPAM. [Suspect]
     Active Substance: OXAZEPAM
     Indication: TOXICITY TO VARIOUS AGENTS
     Dosage: 600 MG, UNK
     Route: 048
     Dates: start: 20180730, end: 20180730

REACTIONS (1)
  - Altered state of consciousness [Recovered/Resolved]

NARRATIVE: CASE EVENT DATE: 20180730
